FAERS Safety Report 16099313 (Version 4)
Quarter: 2019Q2

REPORT INFORMATION
  Report Type: Report from Study
  Country: HN (occurrence: HN)
  Receive Date: 20190321
  Receipt Date: 20190610
  Transmission Date: 20190711
  Serious: Yes (Other)
  Sender: FDA-Public Use
  Company Number: PHHY2019HN060202

PATIENT
  Sex: Male
  Weight: 70 kg

DRUGS (6)
  1. VYMADA [Suspect]
     Active Substance: SACUBITRIL\VALSARTAN
     Indication: CARDIAC DISORDER
  2. VYMADA [Suspect]
     Active Substance: SACUBITRIL\VALSARTAN
     Indication: MYOCARDITIS
     Dosage: 200 MG, BID
     Route: 065
     Dates: start: 201811
  3. FUROSEMIDE. [Concomitant]
     Active Substance: FUROSEMIDE
     Indication: PRODUCT USED FOR UNKNOWN INDICATION
     Dosage: 1 U, QD
     Route: 065
  4. BISOBLOC [Concomitant]
     Indication: PRODUCT USED FOR UNKNOWN INDICATION
     Dosage: 1 U, QD
     Route: 065
  5. VYMADA [Suspect]
     Active Substance: SACUBITRIL\VALSARTAN
     Indication: SEIZURE
  6. SPIRONOLACTONE. [Concomitant]
     Active Substance: SPIRONOLACTONE
     Indication: PRODUCT USED FOR UNKNOWN INDICATION
     Dosage: 1/4 UNIT, QD
     Route: 065

REACTIONS (8)
  - Syncope [Unknown]
  - Disease recurrence [Unknown]
  - Somnolence [Unknown]
  - Seizure [Recovered/Resolved]
  - Fatigue [Unknown]
  - Asthenia [Unknown]
  - Epilepsy [Unknown]
  - Product use in unapproved indication [Unknown]
